FAERS Safety Report 7784752-9 (Version None)
Quarter: 2011Q3

REPORT INFORMATION
  Report Type: 
  Country: None (occurrence: None)
  Receive Date: 20110928
  Receipt Date: 20110923
  Transmission Date: 20111222
  Serious: Yes (Other)
  Sender: FDA-Public Use
  Company Number: CHPA2011PL13090

PATIENT
  Age: 25 Year
  Sex: Male

DRUGS (2)
  1. OTRIVIN [Suspect]
     Indication: NASAL OBSTRUCTION
     Dosage: UNK, BID
     Route: 045
     Dates: start: 20080701, end: 20080901
  2. OTRIVIN [Suspect]
     Indication: NASAL CONGESTION

REACTIONS (2)
  - INCORRECT DRUG ADMINISTRATION DURATION [None]
  - VISUAL IMPAIRMENT [None]
